FAERS Safety Report 9981795 (Version 1)
Quarter: 2014Q1

REPORT INFORMATION
  Report Type: Report from Study
  Country: US (occurrence: US)
  Receive Date: 20140307
  Receipt Date: 20140307
  Transmission Date: 20141002
  Serious: No
  Sender: FDA-Public Use
  Company Number: US-ABBVIE-13P-163-1177836-00

PATIENT
  Age: 63 Year
  Sex: Female

DRUGS (8)
  1. HUMIRA [Suspect]
     Indication: PSORIASIS
     Route: 058
     Dates: start: 201307
  2. LASIX [Concomitant]
     Indication: FLUID RETENTION
  3. PROZAC [Concomitant]
     Indication: PRODUCT USED FOR UNKNOWN INDICATION
  4. ATIVAN [Concomitant]
     Indication: PRODUCT USED FOR UNKNOWN INDICATION
  5. VASOTEC [Concomitant]
     Indication: PRODUCT USED FOR UNKNOWN INDICATION
  6. ZYRTEC [Concomitant]
     Indication: PRODUCT USED FOR UNKNOWN INDICATION
  7. GREEN COFFEE BERRY [Concomitant]
     Indication: PRODUCT USED FOR UNKNOWN INDICATION
  8. NORCO [Concomitant]
     Indication: PRODUCT USED FOR UNKNOWN INDICATION

REACTIONS (1)
  - Local swelling [Recovering/Resolving]
